FAERS Safety Report 17486557 (Version 1)
Quarter: 2020Q1

REPORT INFORMATION
  Report Type: Report from Study
  Country: CO (occurrence: CO)
  Receive Date: 20200303
  Receipt Date: 20200303
  Transmission Date: 20200409
  Serious: Yes (Other)
  Sender: FDA-Public Use
  Company Number: CO-ROCHE-2456266

PATIENT
  Sex: Female

DRUGS (3)
  1. MABTHERA [Suspect]
     Active Substance: RITUXIMAB
     Indication: PRODUCT USED FOR UNKNOWN INDICATION
     Route: 065
  2. TOCILIZUMAB. [Suspect]
     Active Substance: TOCILIZUMAB
     Indication: PRODUCT USED FOR UNKNOWN INDICATION
     Route: 065
  3. METHOTREXATE. [Concomitant]
     Active Substance: METHOTREXATE

REACTIONS (9)
  - Joint swelling [Unknown]
  - Skin disorder [Unknown]
  - Bone pain [Unknown]
  - Peripheral swelling [Unknown]
  - Malaise [Unknown]
  - Weight decreased [Unknown]
  - Pain [Unknown]
  - Alopecia [Recovered/Resolved]
  - Gastric ulcer [Unknown]
